FAERS Safety Report 17619249 (Version 1)
Quarter: 2020Q2

REPORT INFORMATION
  Report Type: Spontaneous
  Country: RO (occurrence: RO)
  Receive Date: 20200402
  Receipt Date: 20200402
  Transmission Date: 20200713
  Serious: Yes (Life-Threatening)
  Sender: FDA-Public Use
  Company Number: RO-FOUNDATIONCONSUMERHC-2020-RO-000003

PATIENT
  Age: 33 Year
  Sex: Female
  Weight: 70 kg

DRUGS (1)
  1. LEVONORGESTREL (UNSPECIFIED) [Suspect]
     Active Substance: LEVONORGESTREL
     Indication: OVARIAN HAEMORRHAGE
     Dosage: 2 TABLETS /12 H; IN TOTAL 3 DOSES IN 2 WEEKS
     Route: 065
     Dates: start: 20200108, end: 20200123

REACTIONS (1)
  - Ovarian cyst ruptured [Recovered/Resolved]

NARRATIVE: CASE EVENT DATE: 20200307
